FAERS Safety Report 20923028 (Version 1)
Quarter: 2022Q2

REPORT INFORMATION
  Report Type: Spontaneous
  Country: FR (occurrence: FR)
  Receive Date: 20220607
  Receipt Date: 20220607
  Transmission Date: 20220721
  Serious: Yes (Hospitalization, Other)
  Sender: FDA-Public Use
  Company Number: None

PATIENT
  Age: 77 Year
  Sex: Male

DRUGS (3)
  1. DEXAMETHASONE [Suspect]
     Active Substance: DEXAMETHASONE
     Indication: Prophylaxis of nausea and vomiting
     Dosage: D1 ON 05/04, D8 ON 12/04, D15 ON 19/04, D22 ON 26/04
     Dates: start: 20220405, end: 20220426
  2. ISATUXIMAB [Suspect]
     Active Substance: ISATUXIMAB
     Indication: Plasma cell myeloma
     Dosage: D1 ON 05/04, D8 ON 12/04, D15 ON 19/04, D22 ON 26/04
     Route: 041
     Dates: start: 20220405, end: 20220426
  3. CARFILZOMIB [Suspect]
     Active Substance: CARFILZOMIB
     Indication: Plasma cell myeloma
     Dosage: D1-D2, D8-D9, D15-D16
     Route: 041
     Dates: start: 20220405, end: 20220420

REACTIONS (1)
  - Thrombotic thrombocytopenic purpura [Not Recovered/Not Resolved]

NARRATIVE: CASE EVENT DATE: 20220427
